FAERS Safety Report 5421068-X (Version None)
Quarter: 2007Q3

REPORT INFORMATION
  Report Type: 
  Country: None (occurrence: None)
  Receive Date: 20070821
  Receipt Date: 20070814
  Transmission Date: 20080115
  Serious: Yes (Hospitalization, Disabling)
  Sender: FDA-Public Use
  Company Number: B0470517A

PATIENT
  Age: 52 Year
  Sex: Male
  Weight: 75 kg

DRUGS (9)
  1. REQUIP [Suspect]
     Indication: PARKINSON'S DISEASE
     Route: 048
     Dates: start: 20070425, end: 20070517
  2. NEODOPASTON [Concomitant]
     Indication: PARKINSON'S DISEASE
     Dosage: 300MG PER DAY
     Route: 048
     Dates: start: 19981116
  3. DEPAS [Concomitant]
     Indication: NEUROSIS
     Dosage: .5MG PER DAY
     Route: 048
     Dates: end: 20070508
  4. AMOBAN [Concomitant]
     Indication: INSOMNIA
     Dosage: .75MG PER DAY
     Route: 048
     Dates: end: 20070508
  5. EXCEGRAN [Concomitant]
     Indication: PARKINSON'S DISEASE
     Route: 065
     Dates: end: 20070425
  6. ADJUST A [Concomitant]
     Indication: CONSTIPATION
     Dosage: 40MG PER DAY
     Route: 048
  7. LAXOBERON [Concomitant]
     Indication: CONSTIPATION
     Route: 048
  8. SEROQUEL [Concomitant]
     Route: 048
     Dates: start: 20070530
  9. LOCAL ANAESTHESIA [Concomitant]

REACTIONS (16)
  - APHASIA [None]
  - ASTHENIA [None]
  - BLOOD CHOLESTEROL INCREASED [None]
  - BLOOD GLUCOSE INCREASED [None]
  - BLOOD PRESSURE FLUCTUATION [None]
  - CEREBRAL HAEMORRHAGE [None]
  - DISORIENTATION [None]
  - EATING DISORDER [None]
  - HAEMATOMA EVACUATION [None]
  - HAEMORRHAGE SUBCUTANEOUS [None]
  - HEMIPLEGIA [None]
  - HEMISENSORY NEGLECT [None]
  - MUSCLE RIGIDITY [None]
  - ORAL INTAKE REDUCED [None]
  - PLATELET COUNT DECREASED [None]
  - WHITE BLOOD CELL COUNT INCREASED [None]
